FAERS Safety Report 12285952 (Version 2)
Quarter: 2016Q3

REPORT INFORMATION
  Report Type: Spontaneous
  Country: FR (occurrence: FR)
  Receive Date: 20160420
  Receipt Date: 20160705
  Transmission Date: 20161109
  Serious: Yes (Other)
  Sender: FDA-Public Use
  Company Number: FR-LEO PHARMA-241343

PATIENT
  Age: 72 Year
  Sex: Female

DRUGS (4)
  1. FLUVASTATIN [Concomitant]
     Active Substance: FLUVASTATIN SODIUM
     Indication: HYPERCHOLESTEROLAEMIA
  2. KARDEGIC [Concomitant]
     Active Substance: ASPIRIN LYSINE
     Indication: CEREBRAL ARTERY EMBOLISM
  3. PICATO [Suspect]
     Active Substance: INGENOL MEBUTATE
     Indication: ACTINIC KERATOSIS
     Route: 061
     Dates: start: 201603, end: 201603
  4. COKENZEN [Concomitant]
     Active Substance: CANDESARTAN CILEXETIL\HYDROCHLOROTHIAZIDE
     Indication: HYPERTENSION

REACTIONS (15)
  - Application site vesicles [Recovered/Resolved]
  - Application site pustules [Recovered/Resolved]
  - Blepharitis [Recovered/Resolved]
  - Application site erosion [Recovered/Resolved]
  - Accidental exposure to product [Unknown]
  - Eyelid oedema [Recovered/Resolved]
  - Application site scab [Recovered/Resolved]
  - Application site irritation [Recovered/Resolved]
  - Application site pain [Recovered/Resolved]
  - Application site exfoliation [Recovered/Resolved]
  - Application site pruritus [Recovered/Resolved]
  - Application site erythema [Recovered/Resolved]
  - Ocular hypertension [Recovered/Resolved]
  - Eye swelling [Recovered/Resolved]
  - Application site swelling [Recovered/Resolved]

NARRATIVE: CASE EVENT DATE: 201603
